FAERS Safety Report 17000158 (Version 1)
Quarter: 2019Q4

REPORT INFORMATION
  Report Type: Spontaneous
  Country: CA (occurrence: CA)
  Receive Date: 20191106
  Receipt Date: 20191106
  Transmission Date: 20200122
  Serious: Yes (Other)
  Sender: FDA-Public Use
  Company Number: CA-TEVA-2019-CA-1131531

PATIENT
  Age: 77 Year
  Sex: Male
  Weight: 105 kg

DRUGS (1)
  1. ACT BICALUTAMIDE [Suspect]
     Active Substance: BICALUTAMIDE
     Dosage: 50 MILLIGRAM DAILY;

REACTIONS (2)
  - Feeling hot [Recovered/Resolved]
  - Hyperhidrosis [Recovered/Resolved]
